FAERS Safety Report 10020912 (Version 1)
Quarter: 2014Q1

REPORT INFORMATION
  Report Type: Spontaneous
  Country: US (occurrence: None)
  Receive Date: 20140318
  Receipt Date: 20140318
  Transmission Date: 20141002
  Serious: No
  Sender: FDA-Public Use
  Company Number: None

PATIENT
  Age: 62 Year
  Sex: Female
  Weight: 147.42 kg

DRUGS (2)
  1. BELVIQ [Suspect]
     Indication: WEIGHT DECREASED
     Dosage: 2 TABS
     Route: 048
     Dates: start: 20140226, end: 20140308
  2. MULTIVITAMIN [Concomitant]

REACTIONS (3)
  - Feeling abnormal [None]
  - Fatigue [None]
  - Back pain [None]
